FAERS Safety Report 8496128-X (Version None)
Quarter: 2012Q3

REPORT INFORMATION
  Report Type: 
  Country: None (occurrence: None)
  Receive Date: 20120709
  Receipt Date: 20120626
  Transmission Date: 20120928
  Serious: Yes (Other)
  Sender: FDA-Public Use
  Company Number: US-JNJFOC-20120614393

PATIENT
  Sex: Female

DRUGS (3)
  1. SUDAFED 12 HOUR [Suspect]
     Indication: MULTIPLE ALLERGIES
     Route: 048
  2. SUDAFED 12 HOUR [Suspect]
     Route: 048
  3. CLARITIN-D [Suspect]
     Indication: PRODUCT USED FOR UNKNOWN INDICATION
     Route: 048

REACTIONS (1)
  - OPIATES POSITIVE [None]
